FAERS Safety Report 11873587 (Version 1)
Quarter: 2015Q4

REPORT INFORMATION
  Report Type: Spontaneous
  Country: US (occurrence: US)
  Receive Date: 20151228
  Receipt Date: 20151228
  Transmission Date: 20160305
  Serious: No
  Sender: FDA-Public Use
  Company Number: US-B.I. PHARMACEUTICALS,INC./RIDGEFIELD-2015-BI-70677BP

PATIENT
  Sex: Male

DRUGS (1)
  1. PRADAXA [Suspect]
     Active Substance: DABIGATRAN ETEXILATE MESYLATE
     Indication: HYPERTENSION
     Dosage: 300 MG
     Route: 048
     Dates: start: 2012

REACTIONS (3)
  - Faeces hard [Not Recovered/Not Resolved]
  - Off label use [Unknown]
  - Painful defaecation [Not Recovered/Not Resolved]

NARRATIVE: CASE EVENT DATE: 2012
